FAERS Safety Report 17549476 (Version 3)
Quarter: 2020Q2

REPORT INFORMATION
  Report Type: Spontaneous
  Country: JP (occurrence: JP)
  Receive Date: 20200317
  Receipt Date: 20200402
  Transmission Date: 20200713
  Serious: Yes (Other)
  Sender: FDA-Public Use
  Company Number: JP-GLAXOSMITHKLINE-JP2020035633

PATIENT
  Age: 23 Year
  Sex: Male

DRUGS (2)
  1. IMIGRAN STATDOSE [Suspect]
     Active Substance: SUMATRIPTAN
     Indication: CLUSTER HEADACHE
     Dosage: UNK, PRN
     Route: 058
     Dates: start: 20190530
  2. SUMATRIPTAN AUTOINJECTOR [Suspect]
     Active Substance: SUMATRIPTAN
     Indication: CLUSTER HEADACHE
     Dosage: UNK, PRN
     Route: 058
     Dates: start: 20190530

REACTIONS (5)
  - Fall [Recovered/Resolved]
  - Device failure [Unknown]
  - Condition aggravated [Recovered/Resolved]
  - Cluster headache [Recovered/Resolved]
  - Needle issue [Unknown]

NARRATIVE: CASE EVENT DATE: 20200128
